FAERS Safety Report 10278878 (Version 4)
Quarter: 2015Q3

REPORT INFORMATION
  Report Type: Report from Study
  Country: BR (occurrence: BR)
  Receive Date: 20140706
  Receipt Date: 20150723
  Transmission Date: 20151125
  Serious: Yes (Death, Hospitalization, Other)
  Sender: FDA-Public Use
  Company Number: PHHY2014BR082691

PATIENT
  Age: 12 Year
  Sex: Female

DRUGS (8)
  1. VITAMINS NOS [Concomitant]
     Active Substance: VITAMINS
     Route: 065
  2. PULMOZYME [Suspect]
     Active Substance: DORNASE ALFA
     Indication: CHEST DISCOMFORT
     Dosage: 1 DF, QD
     Route: 065
  3. PANCREASE MT [Concomitant]
     Active Substance: PANCRELIPASE
     Indication: SUPPLEMENTATION THERAPY
     Dosage: 3 DF, UNK (AT A DOSE OF 2 CAPSULES ON LUNCH AND DINNER AND 1 CAPSULE IN OTHER MEALS)
     Route: 065
  4. ZOTEON PODHALER [Suspect]
     Active Substance: TOBRAMYCIN
     Indication: CHEST DISCOMFORT
  5. PULMOZYME [Suspect]
     Active Substance: DORNASE ALFA
     Indication: SECRETION DISCHARGE
  6. AZITHROMYCIN [Concomitant]
     Active Substance: AZITHROMYCIN ANHYDROUS
     Dosage: THREE TIMES A WEEK
     Route: 065
  7. ZOTEON PODHALER [Suspect]
     Active Substance: TOBRAMYCIN
     Indication: CYSTIC FIBROSIS
     Dosage: 2 DF, BID
     Route: 055
  8. AZITHROMYCIN [Concomitant]
     Active Substance: AZITHROMYCIN ANHYDROUS
     Indication: SECRETION DISCHARGE
     Dosage: UNK, BID

REACTIONS (9)
  - Hypopnoea [Fatal]
  - Haematemesis [Recovering/Resolving]
  - Anaemia [Recovering/Resolving]
  - Tremor [Recovering/Resolving]
  - Increased bronchial secretion [Recovering/Resolving]
  - Lung disorder [Fatal]
  - Respiratory disorder [Fatal]
  - Fatigue [Recovering/Resolving]
  - Drug dependence [Recovering/Resolving]

NARRATIVE: CASE EVENT DATE: 20140618
